FAERS Safety Report 15695269 (Version 1)
Quarter: 2018Q4

REPORT INFORMATION
  Report Type: Spontaneous
  Country: IT (occurrence: IT)
  Receive Date: 20181206
  Receipt Date: 20181206
  Transmission Date: 20190205
  Serious: Yes (Death)
  Sender: FDA-Public Use
  Company Number: IT-TEVA-2018-IT-982988

PATIENT
  Age: 26 Year
  Sex: Female

DRUGS (4)
  1. VINCRISTINA [Suspect]
     Active Substance: VINCRISTINE
     Indication: HODGKIN^S DISEASE
     Dosage: 2 MILLIGRAM DAILY;
     Route: 042
     Dates: start: 20040305, end: 20040305
  2. FILGRASTIM [Concomitant]
     Active Substance: FILGRASTIM
  3. KETOROLAC [Suspect]
     Active Substance: KETOROLAC\KETOROLAC TROMETHAMINE
     Dates: start: 20040310, end: 20040311
  4. METHOTREXATE. [Suspect]
     Active Substance: METHOTREXATE
     Indication: HODGKIN^S DISEASE
     Dosage: 400 MILLIGRAM DAILY;
     Route: 042
     Dates: start: 20040305, end: 20040305

REACTIONS (2)
  - Dermatitis bullous [Fatal]
  - Abdominal pain [Fatal]

NARRATIVE: CASE EVENT DATE: 20040311
